FAERS Safety Report 5220057-8 (Version None)
Quarter: 2007Q1

REPORT INFORMATION
  Report Type: 
  Country: None (occurrence: None)
  Receive Date: 20070125
  Receipt Date: 20070123
  Transmission Date: 20070707
  Serious: Yes (Hospitalization)
  Sender: FDA-Public Use
  Company Number: US-MERCK-0611USA05785

PATIENT
  Age: 53 Year
  Sex: Female
  Weight: 136 kg

DRUGS (15)
  1. FOSAMAX [Suspect]
     Indication: OSTEOPOROSIS
     Route: 048
     Dates: start: 20060101, end: 20061101
  2. COUMADIN [Concomitant]
     Route: 065
  3. HUMALOG [Concomitant]
     Route: 065
  4. LANTUS [Concomitant]
     Route: 065
  5. LIPITOR [Concomitant]
     Route: 065
  6. LASIX [Concomitant]
     Route: 065
  7. KLOR-CON [Concomitant]
     Route: 065
  8. NEURONTIN [Concomitant]
     Route: 065
  9. DETROL LA [Concomitant]
     Route: 065
  10. ATENOLOL [Concomitant]
     Route: 065
  11. METOCLOPRAMIDE [Concomitant]
     Route: 065
  12. SUCRALFATE [Concomitant]
     Route: 065
  13. SPIRIVA [Concomitant]
     Route: 065
  14. DOXEPIN HYDROCHLORIDE [Concomitant]
     Route: 065
  15. INSULIN [Concomitant]
     Route: 065

REACTIONS (8)
  - ANAEMIA [None]
  - ARTHROPATHY [None]
  - DYSGEUSIA [None]
  - EROSIVE OESOPHAGITIS [None]
  - GASTRITIS [None]
  - GASTRITIS EROSIVE [None]
  - HAEMATEMESIS [None]
  - OESOPHAGITIS [None]
